FAERS Safety Report 25647882 (Version 1)
Quarter: 2025Q3

REPORT INFORMATION
  Report Type: Report from Study
  Country: US (occurrence: US)
  Receive Date: 20250806
  Receipt Date: 20250806
  Transmission Date: 20251021
  Serious: No
  Sender: SUNOVION
  Company Number: US-SUMITOMO PHARMA SWITZERLAND GMBH-2024SPA001652

PATIENT
  Age: 68 Year
  Sex: Male

DRUGS (10)
  1. ORGOVYX [Suspect]
     Active Substance: RELUGOLIX
     Indication: Prostate cancer
     Dosage: 360 MG, SINGLE
     Route: 048
     Dates: start: 202406, end: 202406
  2. ORGOVYX [Suspect]
     Active Substance: RELUGOLIX
     Dosage: 120 MG, QD
     Route: 048
     Dates: start: 202406
  3. ASPIRIN [Concomitant]
     Active Substance: ASPIRIN
  4. ATORVASTATIN [Concomitant]
     Active Substance: ATORVASTATIN
  5. CALCIUM\CHOLECALCIFEROL [Concomitant]
     Active Substance: CALCIUM\CHOLECALCIFEROL
  6. LOSARTAN [Concomitant]
     Active Substance: LOSARTAN
  7. MEGESTROL [Concomitant]
     Active Substance: MEGESTROL
  8. MINERALS\VITAMINS [Concomitant]
     Active Substance: MINERALS\VITAMINS
  9. SILDENAFIL [Concomitant]
     Active Substance: SILDENAFIL
  10. XTANDI [Concomitant]
     Active Substance: ENZALUTAMIDE

REACTIONS (4)
  - Cardiovascular disorder [Unknown]
  - Cardiac murmur [Unknown]
  - Fatigue [Unknown]
  - Hot flush [Unknown]

NARRATIVE: CASE EVENT DATE: 20240101
